FAERS Safety Report 15226226 (Version 1)
Quarter: 2018Q3

REPORT INFORMATION
  Report Type: Spontaneous
  Country: LB (occurrence: LB)
  Receive Date: 20180801
  Receipt Date: 20180801
  Transmission Date: 20181010
  Serious: Yes (Other)
  Sender: FDA-Public Use
  Company Number: LB-GLAXOSMITHKLINE-LB2018GSK134088

PATIENT

DRUGS (1)
  1. RELVAR ELLIPTA [Suspect]
     Active Substance: FLUTICASONE FUROATE\VILANTEROL TRIFENATATE
     Indication: ASTHMA
     Dosage: 1 PUFF(S), 1D, 100/25
     Route: 055
     Dates: end: 2018

REACTIONS (2)
  - Drug ineffective [Recovered/Resolved]
  - Condition aggravated [Recovered/Resolved]
